FAERS Safety Report 9134036 (Version 1)
Quarter: 2013Q1

REPORT INFORMATION
  Report Type: Spontaneous
  Country: US (occurrence: US)
  Receive Date: 20130304
  Receipt Date: 20130304
  Transmission Date: 20140127
  Serious: No
  Sender: FDA-Public Use
  Company Number: US-009507513-1302USA012622

PATIENT
  Sex: Female

DRUGS (2)
  1. ASMANEX TWISTHALER [Suspect]
     Indication: ASTHMA
     Dosage: ONE PUFF TAKEN ONCE DAILY
     Route: 055
     Dates: start: 201009
  2. ASMANEX TWISTHALER [Suspect]
     Dosage: A MAXMIMUM 2 PUFFS DAILY WHEN NEEDED
     Route: 055
     Dates: start: 201009

REACTIONS (2)
  - Candida infection [Recovering/Resolving]
  - Urticaria [Unknown]
